FAERS Safety Report 13065416 (Version 1)
Quarter: 2016Q4

REPORT INFORMATION
  Report Type: Spontaneous
  Country: BR (occurrence: BR)
  Receive Date: 20161227
  Receipt Date: 20161227
  Transmission Date: 20170207
  Serious: Yes (Hospitalization, Other)
  Sender: FDA-Public Use
  Company Number: BR-PFIZER INC-2016589571

PATIENT
  Age: 9 Year
  Sex: Female
  Weight: 58 kg

DRUGS (1)
  1. DETRUSITOL [Suspect]
     Active Substance: TOLTERODINE TARTRATE
     Indication: RENAL DISORDER
     Dosage: ONE TABLET (4 MG), DAILY
     Route: 048
     Dates: start: 2010

REACTIONS (3)
  - Accident [Recovered/Resolved with Sequelae]
  - Product use issue [Not Recovered/Not Resolved]
  - Paraplegia [Not Recovered/Not Resolved]

NARRATIVE: CASE EVENT DATE: 2010
